FAERS Safety Report 9093634 (Version 2)
Quarter: 2013Q1

REPORT INFORMATION
  Report Type: Report from Study
  Country: US (occurrence: US)
  Receive Date: 20130201
  Receipt Date: 20130319
  Transmission Date: 20140127
  Serious: Yes (Hospitalization, Other)
  Sender: FDA-Public Use
  Company Number: US-ROCHE-1184236

PATIENT
  Age: 66 Year
  Sex: Male
  Weight: 72 kg

DRUGS (3)
  1. ZELBORAF [Suspect]
     Indication: METASTATIC MALIGNANT MELANOMA
     Route: 048
     Dates: start: 20121120, end: 20121204
  2. ZELBORAF [Suspect]
     Route: 048
     Dates: start: 20121204, end: 20121211
  3. ZELBORAF [Suspect]
     Route: 048
     Dates: start: 20121217, end: 201301

REACTIONS (7)
  - Thrombocytopenia [Recovered/Resolved]
  - Gastrointestinal haemorrhage [Not Recovered/Not Resolved]
  - Duodenal ulcer [Recovered/Resolved]
  - Pulmonary oedema [Not Recovered/Not Resolved]
  - Musculoskeletal pain [Not Recovered/Not Resolved]
  - Neoplasm [Unknown]
  - Generalised oedema [Unknown]
